FAERS Safety Report 13896844 (Version 1)
Quarter: 2017Q3

REPORT INFORMATION
  Report Type: Spontaneous
  Country: US (occurrence: US)
  Receive Date: 20170821
  Receipt Date: 20170821
  Transmission Date: 20171127
  Serious: No
  Sender: FDA-Public Use
  Company Number: None

PATIENT
  Age: 17 Year
  Sex: Male
  Weight: 76.5 kg

DRUGS (2)
  1. IMMUNOTHERAPY SHOTS [Concomitant]
  2. MONTELUKAST SODIUM TABLETS 10 MG [Suspect]
     Active Substance: MONTELUKAST SODIUM
     Indication: ASTHMA
     Dosage: ?          QUANTITY:1 TABLET(S);?
     Dates: start: 20170813, end: 20170816

REACTIONS (4)
  - Mood swings [None]
  - Agitation [None]
  - Anxiety [None]
  - Depression [None]

NARRATIVE: CASE EVENT DATE: 20170816
